FAERS Safety Report 22305306 (Version 2)
Quarter: 2023Q2

REPORT INFORMATION
  Report Type: Spontaneous
  Country: US (occurrence: US)
  Receive Date: 20230510
  Receipt Date: 20230628
  Transmission Date: 20230722
  Serious: No
  Sender: FDA-Public Use
  Company Number: US-BRISTOL-MYERS SQUIBB COMPANY-2023-066471

PATIENT
  Age: 45 Year
  Sex: Male

DRUGS (7)
  1. POMALYST [Suspect]
     Active Substance: POMALIDOMIDE
     Indication: Plasma cell myeloma
     Route: 048
     Dates: start: 20230125
  2. ATORVASTATIN [Concomitant]
     Active Substance: ATORVASTATIN
     Indication: Plasma cell myeloma in remission
  3. CARVEDILOL [Concomitant]
     Active Substance: CARVEDILOL
     Indication: Plasma cell myeloma in remission
  4. GABAPENTIN [Concomitant]
     Active Substance: GABAPENTIN
     Indication: Plasma cell myeloma in remission
  5. JANUVIA [Concomitant]
     Active Substance: SITAGLIPTIN PHOSPHATE
     Indication: Plasma cell myeloma in remission
  6. METFORMIN [Concomitant]
     Active Substance: METFORMIN HYDROCHLORIDE
     Indication: Plasma cell myeloma in remission
  7. NORVASC [Concomitant]
     Active Substance: AMLODIPINE BESYLATE
     Indication: Plasma cell myeloma in remission

REACTIONS (5)
  - Diarrhoea [Unknown]
  - Dizziness [Unknown]
  - Fatigue [Unknown]
  - Product dose omission issue [Unknown]
  - Sluggishness [Unknown]
